FAERS Safety Report 14658738 (Version 1)
Quarter: 2018Q1

REPORT INFORMATION
  Report Type: Spontaneous
  Country: US (occurrence: US)
  Receive Date: 20180320
  Receipt Date: 20180320
  Transmission Date: 20180509
  Serious: Yes (Hospitalization)
  Sender: FDA-Public Use
  Company Number: US-PERRIGO-18US002838

PATIENT
  Age: 2 Year
  Sex: Male
  Weight: 12.7 kg

DRUGS (1)
  1. IBUPROFEN. [Suspect]
     Active Substance: IBUPROFEN
     Indication: PYREXIA
     Dosage: 75 MG Q8H
     Route: 048
     Dates: start: 201711, end: 201711

REACTIONS (7)
  - Stevens-Johnson syndrome [Recovered/Resolved]
  - Hypersensitivity [Recovered/Resolved]
  - Burns third degree [Recovered/Resolved]
  - Rash pruritic [Recovered/Resolved]
  - Skin exfoliation [Recovered/Resolved]
  - Drug administered to patient of inappropriate age [Recovered/Resolved]
  - Blister [Recovered/Resolved]

NARRATIVE: CASE EVENT DATE: 201711
